FAERS Safety Report 15955537 (Version 2)
Quarter: 2019Q2

REPORT INFORMATION
  Report Type: Spontaneous
  Country: PL (occurrence: PL)
  Receive Date: 20190213
  Receipt Date: 20190515
  Transmission Date: 20190711
  Serious: Yes (Death, Other)
  Sender: FDA-Public Use
  Company Number: PL-ROCHE-2261894

PATIENT
  Age: 60 Year
  Sex: Male
  Weight: 101 kg

DRUGS (34)
  1. MABTHERA [Suspect]
     Active Substance: RITUXIMAB
     Dosage: 1 CYCLE OF R-CHOP CHEMOTHERAPY, 1 ST
     Route: 042
     Dates: start: 20170208
  2. HYDROXYDAUNORUBICIN [Suspect]
     Active Substance: DOXORUBICIN
     Dosage: 1 DAY OF 4 CYCLE
     Route: 042
     Dates: start: 20170608
  3. DEXAMETHASONE. [Suspect]
     Active Substance: DEXAMETHASONE
     Indication: DIFFUSE LARGE B-CELL LYMPHOMA
     Route: 065
  4. CYCLOPHOSPHAMIDE. [Suspect]
     Active Substance: CYCLOPHOSPHAMIDE
     Indication: DIFFUSE LARGE B-CELL LYMPHOMA
     Dosage: 2 DAY OF 1 CYCLE OF R-CHOP
     Route: 042
     Dates: start: 20170209
  5. VINCRISTINE SULFATE. [Suspect]
     Active Substance: VINCRISTINE SULFATE
     Indication: DIFFUSE LARGE B-CELL LYMPHOMA
     Dosage: 2 DAY OF 1 CYCLE OF R-CHOP CHEMOTHERAPY
     Route: 065
     Dates: start: 20170209
  6. MABTHERA [Suspect]
     Active Substance: RITUXIMAB
     Indication: DIFFUSE LARGE B-CELL LYMPHOMA
     Route: 042
     Dates: start: 20180423
  7. MABTHERA [Suspect]
     Active Substance: RITUXIMAB
     Route: 042
     Dates: start: 20180719
  8. MABTHERA [Suspect]
     Active Substance: RITUXIMAB
     Dosage: 1 DAY OF 2 CYCLE OF CHEMOTHERAPY
     Route: 042
     Dates: start: 20170423
  9. CYCLOPHOSPHAMIDE. [Suspect]
     Active Substance: CYCLOPHOSPHAMIDE
     Dosage: 1 DAY OF THIRD CYCLE OF TREATMENT
     Route: 042
     Dates: start: 20170516
  10. CYCLOPHOSPHAMIDE. [Suspect]
     Active Substance: CYCLOPHOSPHAMIDE
     Dosage: 2 DAY OF 2 CYCLE
     Route: 042
     Dates: start: 20170424
  11. VINCRISTINE SULFATE. [Suspect]
     Active Substance: VINCRISTINE SULFATE
     Dosage: 1 DAY OF 4 CYCLE
     Route: 042
     Dates: start: 20170608
  12. PREDNISONE. [Suspect]
     Active Substance: PREDNISONE
     Dosage: 1 DAY OF THIRD CYCLE OF TREATMENT
     Route: 048
     Dates: start: 20170516
  13. ZARZIO [Concomitant]
     Active Substance: FILGRASTIM
     Route: 058
     Dates: start: 20170402
  14. HYDROXYDAUNORUBICIN [Suspect]
     Active Substance: DOXORUBICIN
     Dosage: 2 DAY OF 2 CYCLE OF CHEMOTHERAPY
     Route: 065
     Dates: start: 20170424
  15. PREDNISONE. [Suspect]
     Active Substance: PREDNISONE
     Indication: DIFFUSE LARGE B-CELL LYMPHOMA
     Dosage: 1 DAY OF 1 CYCLE OF R-CHOP CHEMOTHERAPY
     Route: 065
     Dates: start: 20170208
  16. PREDNISONE. [Suspect]
     Active Substance: PREDNISONE
     Dosage: 1 DAY OF 4 CYCLE
     Route: 048
     Dates: start: 20170608
  17. CYTARABINE. [Suspect]
     Active Substance: CYTARABINE
     Indication: DIFFUSE LARGE B-CELL LYMPHOMA
     Route: 065
  18. ENCORTON [PREDNISONE] [Suspect]
     Active Substance: PREDNISONE
     Route: 048
     Dates: start: 20170611
  19. MABTHERA [Suspect]
     Active Substance: RITUXIMAB
     Dosage: THIRD CYCLE OF TREATMENT
     Route: 042
     Dates: start: 20170515
  20. VINCRISTINE SULFATE. [Suspect]
     Active Substance: VINCRISTINE SULFATE
     Dosage: 2 DAY OF 2 CYCLE OF CHEMOTHERAPY
     Route: 065
     Dates: start: 20180424
  21. CIPRONEX [CIPROFLOXACIN] [Concomitant]
     Dosage: 1-0-1, 7 DAYS
     Route: 048
  22. MILURIT [Concomitant]
     Active Substance: ALLOPURINOL
     Dosage: 1-0-1, 7 DAYS
     Route: 048
  23. CYCLOPHOSPHAMIDE. [Suspect]
     Active Substance: CYCLOPHOSPHAMIDE
     Dosage: 1 DAY OF 4 CYCLE
     Route: 042
     Dates: start: 20170608
  24. HYDROXYDAUNORUBICIN [Suspect]
     Active Substance: DOXORUBICIN
     Dosage: 1 DAY OF THIRD CYCLE OF TREATMENT
     Route: 042
     Dates: start: 20170516
  25. PREDNISONE. [Suspect]
     Active Substance: PREDNISONE
     Dosage: 2- 3 DAY OF 2 CYCLE OF CHEMOTHERAPY
     Route: 065
     Dates: start: 20170424
  26. ZARZIO [Concomitant]
     Active Substance: FILGRASTIM
     Route: 058
     Dates: start: 20170517
  27. ZARZIO [Concomitant]
     Active Substance: FILGRASTIM
     Dosage: 1 AMPOULE
     Route: 058
     Dates: start: 20170426
  28. MABTHERA [Suspect]
     Active Substance: RITUXIMAB
     Dosage: 4TH CYCLE OF TREATMENT
     Route: 042
     Dates: start: 20170607
  29. HYDROXYDAUNORUBICIN [Suspect]
     Active Substance: DOXORUBICIN
     Indication: DIFFUSE LARGE B-CELL LYMPHOMA
     Dosage: 2 DAY OF 1 CYCLE OF R-CHOP CHEMOTHERAPY
     Route: 065
     Dates: start: 20170209
  30. VINCRISTINE SULFATE. [Suspect]
     Active Substance: VINCRISTINE SULFATE
     Dosage: 1 DAY OF THIRD CYCLE OF TREATMENT
     Route: 042
     Dates: start: 20170516
  31. PLATINOL [Suspect]
     Active Substance: CISPLATIN
     Indication: DIFFUSE LARGE B-CELL LYMPHOMA
     Route: 065
  32. ENCORTON [PREDNISONE] [Suspect]
     Active Substance: PREDNISONE
     Indication: DIFFUSE LARGE B-CELL LYMPHOMA
     Dosage: 3-2-0
     Route: 048
  33. NYSTATIN. [Concomitant]
     Active Substance: NYSTATIN
     Dosage: 1-1-1, 7 DAYS
     Route: 048
  34. POLPRAZOL [OMEPRAZOLE] [Concomitant]
     Active Substance: OMEPRAZOLE
     Dosage: 1-1-0, 7 DAYS
     Route: 048

REACTIONS (9)
  - Neoplasm malignant [Unknown]
  - Death [Fatal]
  - Leukopenia [Unknown]
  - Lymphocytic infiltration [Unknown]
  - Splenomegaly [Unknown]
  - Diffuse large B-cell lymphoma recurrent [Unknown]
  - Neutropenia [Unknown]
  - Bone marrow failure [Unknown]
  - Pyrexia [Unknown]

NARRATIVE: CASE EVENT DATE: 201807
